FAERS Safety Report 9787643 (Version 2)
Quarter: 2014Q1

REPORT INFORMATION
  Report Type: Spontaneous
  Country: US (occurrence: US)
  Receive Date: 20131230
  Receipt Date: 20140205
  Transmission Date: 20141002
  Serious: No
  Sender: FDA-Public Use
  Company Number: US-009507513-1312USA010150

PATIENT
  Age: 20 Year
  Sex: Female
  Weight: 63.95 kg

DRUGS (1)
  1. NEXPLANON [Suspect]
     Indication: CONTRACEPTION
     Dosage: 1 ROD, LEFT ARM
     Route: 059
     Dates: start: 20131004

REACTIONS (4)
  - Breast mass [Unknown]
  - Axillary pain [Unknown]
  - Skin warm [Unknown]
  - Acne [Unknown]
